FAERS Safety Report 5962088-6 (Version None)
Quarter: 2008Q4

REPORT INFORMATION
  Report Type: 
  Country: None (occurrence: None)
  Receive Date: 20081121
  Receipt Date: 20081112
  Transmission Date: 20090506
  Serious: Yes (Hospitalization)
  Sender: FDA-Public Use
  Company Number: PHHY2008DE18106

PATIENT
  Sex: Male

DRUGS (7)
  1. SANDIMMUNE [Suspect]
     Indication: LIVER TRANSPLANT
     Dosage: UNK
     Route: 048
     Dates: start: 20080601
  2. SANDIMMUNE [Suspect]
     Dosage: 300 MG/D
     Route: 048
  3. URBASON [Concomitant]
     Route: 065
  4. CLAFORAN [Concomitant]
     Route: 065
  5. KEPINOL [Concomitant]
     Route: 065
  6. PANTOZOL [Concomitant]
     Route: 065
  7. CIPROFLOXACIN HCL [Concomitant]
     Route: 065

REACTIONS (3)
  - DIARRHOEA [None]
  - GASTROINTESTINAL INFECTION [None]
  - IMMUNOSUPPRESSANT DRUG LEVEL DECREASED [None]
